FAERS Safety Report 5054442-4 (Version None)
Quarter: 2006Q3

REPORT INFORMATION
  Report Type: 
  Country: None (occurrence: None)
  Receive Date: 20060718
  Receipt Date: 20060705
  Transmission Date: 20061208
  Serious: Yes (Other)
  Sender: FDA-Public Use
  Company Number: JP-MERCK-0607USA02751

PATIENT
  Age: 67 Year
  Sex: Male
  Weight: 71 kg

DRUGS (4)
  1. PROPECIA [Suspect]
     Indication: ALOPECIA
     Route: 048
     Dates: start: 20051227, end: 20060616
  2. NIVADIL [Concomitant]
     Indication: HYPERTENSION
     Route: 048
  3. SILECE [Concomitant]
     Indication: INSOMNIA
     Route: 048
  4. DEPAS [Concomitant]
     Indication: AUTONOMIC NERVOUS SYSTEM IMBALANCE
     Route: 048

REACTIONS (1)
  - BLOOD CREATINE PHOSPHOKINASE INCREASED [None]
